FAERS Safety Report 10003840 (Version 1)
Quarter: 2014Q1

REPORT INFORMATION
  Report Type: Spontaneous
  Country: US (occurrence: US)
  Receive Date: 20140312
  Receipt Date: 20140312
  Transmission Date: 20141002
  Serious: No
  Sender: FDA-Public Use
  Company Number: US-INCYTE CORPORATION-2013IN002904

PATIENT
  Age: 73 Year
  Sex: Male
  Weight: 104.31 kg

DRUGS (10)
  1. JAKAFI [Suspect]
     Dosage: 10 MG, BID
     Dates: end: 201311
  2. JAKAFI [Suspect]
     Dosage: 10 MG, QD
     Dates: start: 201311
  3. DIOVAN [Concomitant]
     Dosage: 160 MG, UNK
  4. METOPROLOL [Concomitant]
     Dosage: 100 MG, ER
  5. OMEPRAZOLE [Concomitant]
     Dosage: 20 MG, UNK
  6. FINASTERIDE [Concomitant]
     Dosage: 1 MG, UNK
  7. ZINC [Concomitant]
     Dosage: 50 MG, UNK
  8. ALLERGY TAB [Concomitant]
     Dosage: 25 MG, UNK
  9. MULTIVITAMIN                       /00097801/ [Concomitant]
  10. OMEGA 3                            /01334101/ [Concomitant]

REACTIONS (6)
  - Fluid retention [Unknown]
  - Feeling abnormal [Unknown]
  - Abnormal dreams [Unknown]
  - Nightmare [Unknown]
  - Insomnia [Unknown]
  - Testicular swelling [Unknown]
